FAERS Safety Report 4508935-6 (Version None)
Quarter: 2004Q4

REPORT INFORMATION
  Report Type: 
  Country: None (occurrence: None)
  Receive Date: 20041122
  Receipt Date: 20041122
  Transmission Date: 20050328
  Serious: Yes (Death)
  Sender: FDA-Public Use
  Company Number: None

PATIENT
  Age: 66 Year
  Sex: Male
  Weight: 95.2554 kg

DRUGS (1)
  1. PACLITAXEL [Suspect]
     Dosage: COSTED STENT   INTRACORON
     Route: 022

REACTIONS (4)
  - CARDIAC FAILURE [None]
  - MYOCARDIAL INFARCTION [None]
  - POST PROCEDURAL COMPLICATION [None]
  - STENT OCCLUSION [None]
